FAERS Safety Report 25125894 (Version 2)
Quarter: 2025Q2

REPORT INFORMATION
  Report Type: Spontaneous
  Country: BR (occurrence: BR)
  Receive Date: 20250326
  Receipt Date: 20250403
  Transmission Date: 20250716
  Serious: Yes (Death, Hospitalization, Other)
  Sender: GILEAD
  Company Number: BR-GILEAD-2025-0706068

PATIENT
  Age: 51 Year
  Sex: Male
  Weight: 85 kg

DRUGS (2)
  1. YESCARTA [Suspect]
     Active Substance: AXICABTAGENE CILOLEUCEL
     Indication: Lymphoma
     Route: 042
     Dates: start: 20250226, end: 20250226
  2. YESCARTA [Suspect]
     Active Substance: AXICABTAGENE CILOLEUCEL
     Indication: Diffuse large B-cell lymphoma stage IV

REACTIONS (6)
  - Disseminated intravascular coagulation [Fatal]
  - Hypotension [Fatal]
  - Bacteraemia [Fatal]
  - Haemophagocytic lymphohistiocytosis [Fatal]
  - Somnolence [Recovering/Resolving]
  - Loss of consciousness [Not Recovered/Not Resolved]

NARRATIVE: CASE EVENT DATE: 20250228
